FAERS Safety Report 9823019 (Version 2)
Quarter: 2014Q1

REPORT INFORMATION
  Report Type: Spontaneous
  Country: US (occurrence: US)
  Receive Date: 20140116
  Receipt Date: 20140116
  Transmission Date: 20141002
  Serious: No
  Sender: FDA-Public Use
  Company Number: US-GILEAD-2010-0032972

PATIENT
  Age: 62 Year
  Sex: Female
  Weight: 109.77 kg

DRUGS (15)
  1. LETAIRIS [Suspect]
     Indication: PULMONARY ARTERIAL HYPERTENSION
     Route: 048
     Dates: start: 20080501
  2. LASIX [Concomitant]
  3. PREDNISONE [Concomitant]
  4. PRILOSEC [Concomitant]
  5. SULFASALAZINE [Concomitant]
  6. HYDROCODONE-APAP [Concomitant]
  7. TRAMADOL [Concomitant]
  8. PERCOCET [Concomitant]
  9. IBUPROFEN [Concomitant]
  10. LEFLUNOMIDE [Concomitant]
  11. PLAQUENIL [Concomitant]
  12. CITALOPRAM [Concomitant]
  13. LEVOTHYROXINE [Concomitant]
  14. POTASSIUM CL [Concomitant]
  15. VITAMIN B6 [Concomitant]

REACTIONS (1)
  - Respiration abnormal [Unknown]
